FAERS Safety Report 13583466 (Version 2)
Quarter: 2017Q3

REPORT INFORMATION
  Report Type: Spontaneous
  Country: CH (occurrence: CH)
  Receive Date: 20170526
  Receipt Date: 20170721
  Transmission Date: 20171127
  Serious: Yes (Other)
  Sender: FDA-Public Use
  Company Number: CH-CONCORDIA PHARMACEUTICALS INC.-GSH201705-003158

PATIENT
  Sex: Female

DRUGS (5)
  1. PROGYNOVA [Concomitant]
     Active Substance: ESTRADIOL VALERATE
  2. PLAQUENIL [Suspect]
     Active Substance: HYDROXYCHLOROQUINE SULFATE
     Indication: ARTHRITIS
     Route: 048
     Dates: start: 2014
  3. ESTRADOT [Concomitant]
     Active Substance: ESTRADIOL
  4. SOTALOL ^MEPHA^ [Concomitant]
     Dates: start: 201611
  5. MIRENA [Concomitant]
     Active Substance: LEVONORGESTREL

REACTIONS (13)
  - Sleep disorder [Unknown]
  - Performance status decreased [Unknown]
  - Arrhythmia [Unknown]
  - Feeling hot [Unknown]
  - Discomfort [Unknown]
  - Cardiac disorder [Unknown]
  - Arrhythmia [Unknown]
  - Condition aggravated [Unknown]
  - Macular degeneration [Unknown]
  - Hypotonia [Unknown]
  - Dizziness [Unknown]
  - Alopecia [Unknown]
  - Quality of life decreased [Unknown]

NARRATIVE: CASE EVENT DATE: 2015
